FAERS Safety Report 14784345 (Version 1)
Quarter: 2018Q2

REPORT INFORMATION
  Report Type: Spontaneous
  Country: NL (occurrence: NL)
  Receive Date: 20180420
  Receipt Date: 20180420
  Transmission Date: 20180711
  Serious: Yes (Other)
  Sender: FDA-Public Use
  Company Number: NL-BAYER-2018-074334

PATIENT
  Sex: Female

DRUGS (2)
  1. ULTRAVIST [Suspect]
     Active Substance: IOPROMIDE
     Indication: COMPUTERISED TOMOGRAM THORAX
     Dosage: 150 ML, UNK (3.8ML/S)
     Dates: start: 20171018
  2. ULTRAVIST [Suspect]
     Active Substance: IOPROMIDE
     Indication: COMPUTERISED TOMOGRAM LIVER

REACTIONS (3)
  - Hypoglycaemia [None]
  - Muscular weakness [None]
  - Dyspnoea [None]
